FAERS Safety Report 7626563-0 (Version None)
Quarter: 2011Q3

REPORT INFORMATION
  Report Type: 
  Country: None (occurrence: None)
  Receive Date: 20110721
  Receipt Date: 20110713
  Transmission Date: 20111222
  Serious: Yes (Hospitalization)
  Sender: FDA-Public Use
  Company Number: JP-GLAXOSMITHKLINE-B0701790A

PATIENT
  Sex: Female
  Weight: 42 kg

DRUGS (16)
  1. KYTRIL [Concomitant]
     Dosage: 2IUAX PER DAY
     Dates: start: 20070402, end: 20070403
  2. CIPROFLOXACIN [Concomitant]
     Dosage: 600MG PER DAY
     Route: 048
     Dates: start: 20070402, end: 20070409
  3. MECOBALAMIN [Concomitant]
     Dosage: 1500MG PER DAY
     Route: 048
     Dates: start: 20070425
  4. ACYCLOVIR [Concomitant]
     Dosage: 100MG PER DAY
     Route: 048
     Dates: start: 20070330, end: 20070410
  5. DIAMOX SRC [Concomitant]
     Dosage: 750MG PER DAY
     Route: 048
     Dates: start: 20070401, end: 20070404
  6. MUCOSTA [Concomitant]
     Dosage: 300MG PER DAY
     Route: 048
     Dates: start: 20070330, end: 20070410
  7. FLUCONAZOLE [Concomitant]
     Dosage: 100MG PER DAY
     Route: 048
     Dates: start: 20070425
  8. MECOBALAMIN [Concomitant]
     Dosage: 1500MG PER DAY
     Route: 048
     Dates: start: 20070330, end: 20070410
  9. ENTOMOL [Concomitant]
     Dosage: 3G PER DAY
     Route: 048
     Dates: start: 20070425
  10. ENTOMOL [Concomitant]
     Dosage: 3G PER DAY
     Route: 048
     Dates: start: 20070330, end: 20070410
  11. UNKNOWN DRUG [Concomitant]
     Route: 042
     Dates: start: 20070401, end: 20070501
  12. HEPARIN SODIUM [Concomitant]
     Dosage: 4ML PER DAY
     Dates: start: 20070401, end: 20070501
  13. ALLOPURINOL [Concomitant]
     Dosage: 300MG PER DAY
     Route: 048
     Dates: start: 20070401, end: 20070404
  14. ALKERAN [Suspect]
     Indication: STEM CELL TRANSPLANT
     Dosage: 128MGM2 PER DAY
     Route: 042
     Dates: start: 20070402, end: 20070403
  15. NEUTROGIN [Concomitant]
     Dates: start: 20070406, end: 20070416
  16. FLUCONAZOLE [Concomitant]
     Dosage: 100MG PER DAY
     Route: 048
     Dates: start: 20070330, end: 20070410

REACTIONS (6)
  - MUCOUS MEMBRANE DISORDER [None]
  - OROPHARYNGEAL PAIN [None]
  - HAEMATEMESIS [None]
  - PYREXIA [None]
  - DIARRHOEA [None]
  - VOMITING [None]
